FAERS Safety Report 19500937 (Version 1)
Quarter: 2021Q3

REPORT INFORMATION
  Report Type: Spontaneous
  Country: US (occurrence: US)
  Receive Date: 20210706
  Receipt Date: 20210706
  Transmission Date: 20211014
  Serious: Yes (Other)
  Sender: FDA-Public Use
  Company Number: None

PATIENT
  Sex: Male

DRUGS (3)
  1. PREDNISONE. [Concomitant]
     Active Substance: PREDNISONE
  2. BREO ELLPTA [Concomitant]
  3. IMATINIB. [Suspect]
     Active Substance: IMATINIB MESYLATE
     Route: 048
     Dates: start: 20171017

REACTIONS (1)
  - Shoulder operation [None]
